FAERS Safety Report 7025114-1 (Version None)
Quarter: 2010Q4

REPORT INFORMATION
  Report Type: 
  Country: None (occurrence: None)
  Receive Date: 20101001
  Receipt Date: 20100921
  Transmission Date: 20110411
  Serious: Yes (Hospitalization)
  Sender: FDA-Public Use
  Company Number: DE-PFIZER INC-2010105626

PATIENT
  Age: 30 Year
  Sex: Male

DRUGS (1)
  1. CLINDAMYCIN HYDROCHLORIDE [Suspect]
     Dosage: 300 MG, 4X/DAY
     Route: 048
     Dates: start: 20100701

REACTIONS (6)
  - ADMINISTRATION RELATED REACTION [None]
  - ADMINISTRATION SITE PAIN [None]
  - ADVERSE DRUG REACTION [None]
  - FOREIGN BODY [None]
  - HOSPITALISATION [None]
  - WRONG TECHNIQUE IN DRUG USAGE PROCESS [None]
